FAERS Safety Report 20893347 (Version 1)
Quarter: 2022Q2

REPORT INFORMATION
  Report Type: Spontaneous
  Country: US (occurrence: US)
  Receive Date: 20220531
  Receipt Date: 20220531
  Transmission Date: 20220721
  Serious: No
  Sender: FDA-Public Use
  Company Number: US-TEVA-2022-US-2036581

PATIENT
  Sex: Female

DRUGS (1)
  1. QVAR REDIHALER [Suspect]
     Active Substance: BECLOMETHASONE DIPROPIONATE
     Route: 055

REACTIONS (5)
  - Incorrect dose administered by device [Unknown]
  - Malaise [Unknown]
  - Device malfunction [Unknown]
  - Product storage error [Unknown]
  - Device maintenance issue [Unknown]
